FAERS Safety Report 6702537-9 (Version None)
Quarter: 2010Q2

REPORT INFORMATION
  Report Type: 
  Country: None (occurrence: None)
  Receive Date: 20100429
  Receipt Date: 20100417
  Transmission Date: 20101027
  Serious: Yes (Other)
  Sender: FDA-Public Use
  Company Number: US-PFIZER INC-2010048639

PATIENT
  Sex: Female
  Weight: 87.982 kg

DRUGS (4)
  1. CHANTIX [Suspect]
     Indication: SMOKING CESSATION THERAPY
     Dosage: 0.5 MG, 1X/DAY
     Route: 048
     Dates: start: 20100411, end: 20100401
  2. CHANTIX [Suspect]
     Dosage: 0.5 MG, 2X/DAY
     Dates: start: 20100401
  3. ULTRAM [Concomitant]
     Indication: RHEUMATOID ARTHRITIS
     Dosage: 50 MG, 4X/DAY
     Route: 048
  4. ULTRAM [Concomitant]
     Indication: FIBROMYALGIA

REACTIONS (2)
  - AGITATION [None]
  - NERVOUSNESS [None]
